FAERS Safety Report 7352395-7 (Version None)
Quarter: 2011Q1

REPORT INFORMATION
  Report Type: 
  Country: None (occurrence: None)
  Receive Date: 20110315
  Receipt Date: 20100909
  Transmission Date: 20110831
  Serious: Yes (Hospitalization, Other)
  Sender: FDA-Public Use
  Company Number: US-BAYER-200943309NA

PATIENT
  Sex: Female
  Weight: 65.76 kg

DRUGS (9)
  1. FAMOTIDINE [Concomitant]
  2. YASMIN [Suspect]
     Indication: PREMENSTRUAL SYNDROME
     Dosage: UNK
     Dates: start: 20020801, end: 20071201
  3. YASMIN [Suspect]
     Indication: CONTRACEPTION
  4. YAZ [Suspect]
     Indication: CONTRACEPTION
     Dosage: UNK
     Dates: start: 20061001, end: 20060101
  5. VERAPAMIL [Concomitant]
     Indication: MITRAL VALVE PROLAPSE
     Dosage: 180 MG, QD
     Dates: start: 20030701, end: 20070101
  6. ALLEGRA D 24 HOUR [Concomitant]
     Indication: SEASONAL ALLERGY
     Dosage: 60 MG, PRN
     Dates: start: 20030601, end: 20061001
  7. AZITHROMYCIN [Concomitant]
  8. YAZ [Suspect]
     Indication: PREMENSTRUAL SYNDROME
  9. IBUPROFEN [Concomitant]
     Dosage: UNK UNK, PRN

REACTIONS (9)
  - CHOLECYSTITIS [None]
  - GALLBLADDER DISORDER [None]
  - VOMITING [None]
  - PROCEDURAL PAIN [None]
  - GASTROOESOPHAGEAL REFLUX DISEASE [None]
  - BILIARY DYSKINESIA [None]
  - ABDOMINAL PAIN UPPER [None]
  - NAUSEA [None]
  - DYSPEPSIA [None]
